FAERS Safety Report 8169457-7 (Version None)
Quarter: 2012Q1

REPORT INFORMATION
  Report Type: 
  Country: None (occurrence: None)
  Receive Date: 20120222
  Receipt Date: 20120209
  Transmission Date: 20120608
  Serious: Yes (Other)
  Sender: FDA-Public Use
  Company Number: 2012000018

PATIENT
  Age: 72 Year
  Sex: Male

DRUGS (5)
  1. ACEON [Suspect]
     Indication: PRODUCT USED FOR UNKNOWN INDICATION
     Dosage: 4 MG, QD, ORAL
     Route: 048
     Dates: start: 20100818, end: 20100823
  2. SPIRONOLACTONE [Suspect]
     Indication: PRODUCT USED FOR UNKNOWN INDICATION
     Dosage: 20 MG, QD, ORAL
     Route: 048
     Dates: start: 20100818, end: 20100823
  3. HYDROCHLOROTHIAZIDE [Suspect]
     Indication: PRODUCT USED FOR UNKNOWN INDICATION
     Dosage: 4. 25 MG, QD, ORAL
     Route: 048
     Dates: start: 20100818, end: 20100823
  4. ASPIRIN [Concomitant]
  5. POTASSIUM CHLORIDE [Suspect]
     Indication: PRODUCT USED FOR UNKNOWN INDICATION
     Dosage: 1 G, QD,. ORAL
     Route: 048
     Dates: start: 20100818, end: 20100823

REACTIONS (6)
  - HYPERHIDROSIS [None]
  - HYPERKALAEMIA [None]
  - DRUG INTERACTION [None]
  - SINUS ARREST [None]
  - CHEST PAIN [None]
  - SYNCOPE [None]
